FAERS Safety Report 6808010-1 (Version None)
Quarter: 2010Q2

REPORT INFORMATION
  Report Type: 
  Country: None (occurrence: None)
  Receive Date: 20100629
  Receipt Date: 20090302
  Transmission Date: 20101027
  Serious: Yes (Hospitalization)
  Sender: FDA-Public Use
  Company Number: US-PFIZER INC-2009177294

PATIENT
  Sex: Female

DRUGS (12)
  1. CLINDAMYCIN PHOSPHATE [Suspect]
  2. AZITHROMYCIN [Suspect]
  3. ANTI-CTLA4 MONOCLONAL ANTIBODY [Suspect]
     Indication: LUNG NEOPLASM MALIGNANT
     Dosage: 760 MG, UNK
     Route: 042
     Dates: start: 20081117, end: 20081117
  4. TAXOL [Suspect]
     Indication: LUNG NEOPLASM MALIGNANT
     Dosage: 330 MG, UNK
     Route: 042
     Dates: start: 20081117, end: 20081117
  5. PARAPLATIN [Suspect]
     Indication: LUNG NEOPLASM MALIGNANT
     Dosage: 770 MG, UNK
     Route: 042
     Dates: start: 20081117, end: 20081117
  6. PLACEBO [Suspect]
     Indication: LUNG NEOPLASM MALIGNANT
     Dosage: UNK
     Route: 042
     Dates: start: 20081117, end: 20081117
  7. HYDROMORPHONE [Concomitant]
  8. METRONIDAZOLE [Concomitant]
  9. PREDNISONE [Concomitant]
  10. COMPAZINE [Concomitant]
  11. DIGOXIN [Concomitant]
  12. ATENOLOL [Concomitant]

REACTIONS (1)
  - CLOSTRIDIUM DIFFICILE COLITIS [None]
